FAERS Safety Report 5694954-3 (Version None)
Quarter: 2008Q2

REPORT INFORMATION
  Report Type: 
  Country: None (occurrence: None)
  Receive Date: 20080404
  Receipt Date: 20080326
  Transmission Date: 20081010
  Serious: Yes (Other)
  Sender: FDA-Public Use
  Company Number: PHNU2008DE01402

PATIENT
  Sex: Male

DRUGS (2)
  1. DIOVAN [Suspect]
     Dosage: 1 DF, ONCE/SINGLE
     Route: 048
  2. DIOVAN [Suspect]
     Dosage: 0.5 DF, QD
     Route: 048

REACTIONS (2)
  - MEDICATION ERROR [None]
  - URINARY RETENTION [None]
